FAERS Safety Report 4991933-6 (Version None)
Quarter: 2006Q2

REPORT INFORMATION
  Report Type: 
  Country: None (occurrence: None)
  Receive Date: 20060504
  Receipt Date: 20060424
  Transmission Date: 20061013
  Serious: Yes (Other)
  Sender: FDA-Public Use
  Company Number: US-JNJFOC-20060405270

PATIENT
  Sex: Female
  Weight: 53.52 kg

DRUGS (5)
  1. RAZADYNE ER [Suspect]
     Route: 048
  2. REMINYL [Suspect]
     Route: 048
  3. NAMENDA [Concomitant]
     Route: 048
  4. LIPITOR [Concomitant]
     Route: 048
  5. FOLIC ACID [Concomitant]

REACTIONS (2)
  - POLLAKIURIA [None]
  - POLYP [None]
